FAERS Safety Report 12582010 (Version 1)
Quarter: 2016Q3

REPORT INFORMATION
  Report Type: Spontaneous
  Country: GB (occurrence: GB)
  Receive Date: 20160722
  Receipt Date: 20160722
  Transmission Date: 20161109
  Serious: Yes (Hospitalization)
  Sender: FDA-Public Use
  Company Number: GB-ASTRAZENECA-2016SE77730

PATIENT
  Age: 78 Year
  Sex: Male
  Weight: 4.1 kg

DRUGS (9)
  1. BENPERIDOL [Concomitant]
     Active Substance: BENPERIDOL
  2. BISOPROLOL [Concomitant]
     Active Substance: BISOPROLOL
  3. TAMSULOSIN [Concomitant]
     Active Substance: TAMSULOSIN
  4. FUROSEMIDE. [Concomitant]
     Active Substance: FUROSEMIDE
  5. ZOLADEX [Suspect]
     Active Substance: GOSERELIN ACETATE
     Indication: PROSTATE CANCER
     Dosage: 3.6MG UNKNOWN
     Route: 058
     Dates: start: 20160310, end: 20160509
  6. FERROUS SULFATE. [Concomitant]
     Active Substance: FERROUS SULFATE
  7. RADIOTHERAPY [Concomitant]
     Active Substance: RADIATION THERAPY
  8. BICALUTAMIDE. [Concomitant]
     Active Substance: BICALUTAMIDE
  9. SPIRONOLACTONE. [Concomitant]
     Active Substance: SPIRONOLACTONE

REACTIONS (4)
  - Orthopnoea [Recovered/Resolved with Sequelae]
  - Dyspnoea [Recovering/Resolving]
  - Cough [Recovered/Resolved]
  - Cardiac failure [Not Recovered/Not Resolved]

NARRATIVE: CASE EVENT DATE: 20160321
